FAERS Safety Report 12246032 (Version 1)
Quarter: 2016Q2

REPORT INFORMATION
  Report Type: Spontaneous
  Country: US (occurrence: None)
  Receive Date: 20160406
  Receipt Date: 20160406
  Transmission Date: 20160815
  Serious: Yes (Other)
  Sender: FDA-Public Use
  Company Number: None

PATIENT
  Age: 73 Year
  Sex: Female

DRUGS (2)
  1. TROPICAMIDE, 1% BAUSCH + LOMB [Suspect]
     Active Substance: TROPICAMIDE
     Indication: THERAPEUTIC PROCEDURE
     Dosage: 15 ML 1 DROP OPHTHALMIC
     Route: 047
     Dates: start: 20160121, end: 20160121
  2. PROPARACAINE HYDROCHLORIDE, 0.5% BAUSCH + LOMB [Suspect]
     Active Substance: PROPARACAINE HYDROCHLORIDE
     Indication: THERAPEUTIC PROCEDURE
     Dosage: 15 ML 1 DROP OPHTHALMIC
     Route: 047
     Dates: start: 20160121, end: 20160121

REACTIONS (3)
  - Iris disorder [None]
  - Iris atrophy [None]
  - Instillation site discolouration [None]

NARRATIVE: CASE EVENT DATE: 20160121
